FAERS Safety Report 7010239-7 (Version None)
Quarter: 2010Q3

REPORT INFORMATION
  Report Type: 
  Country: None (occurrence: None)
  Receive Date: 20100923
  Receipt Date: 20100922
  Transmission Date: 20110219
  Serious: Yes (Life-Threatening, Hospitalization)
  Sender: FDA-Public Use
  Company Number: GXKR2009DE01518

PATIENT
  Age: 82 Year
  Sex: Male
  Weight: 77 kg

DRUGS (9)
  1. METOPROLOL SUCCINATE [Interacting]
     Indication: HYPERTENSION
     Dosage: 95 MG, BID
  2. ACTRAPID NOVOLET [Suspect]
     Indication: TYPE 2 DIABETES MELLITUS
     Dosage: 16 IU, QD
     Route: 058
     Dates: start: 19910101
  3. ACTRAPHANE HM [Suspect]
     Dosage: 30-0-26 IU
     Dates: start: 19910101
  4. ATACAND [Suspect]
     Indication: HYPERTENSION
     Dosage: 32 MG, QD
  5. CARMEN [Concomitant]
  6. DOXAZOSIN MESYLATE [Concomitant]
  7. HYDROCHLOROTHIAZIDE [Concomitant]
  8. MOXONIDINE [Concomitant]
  9. SIMVASTATIN [Concomitant]

REACTIONS (2)
  - CONVULSION [None]
  - SHOCK HYPOGLYCAEMIC [None]
